FAERS Safety Report 16543008 (Version 2)
Quarter: 2019Q3

REPORT INFORMATION
  Report Type: Spontaneous
  Country: IT (occurrence: IT)
  Receive Date: 20190709
  Receipt Date: 20190725
  Transmission Date: 20191004
  Serious: Yes (Hospitalization, Other)
  Sender: FDA-Public Use
  Company Number: IT-AUROBINDO-AUR-APL-2019-037891

PATIENT

DRUGS (3)
  1. ERLOTINIB [Suspect]
     Active Substance: ERLOTINIB
     Indication: NON-SMALL CELL LUNG CANCER
     Dosage: UNK,CYCLICAL,MULTIPLE CYCLES
     Route: 065
     Dates: start: 2005
  2. DOCETAXEL. [Suspect]
     Active Substance: DOCETAXEL
     Indication: NON-SMALL CELL LUNG CANCER
     Dosage: UNK, CYCLICAL,MULTIPLE CYCLES
     Route: 065
     Dates: start: 2005
  3. CARBOPLATIN. [Suspect]
     Active Substance: CARBOPLATIN
     Indication: NON-SMALL CELL LUNG CANCER
     Dosage: UNK, CYCLICAL,MULTIPLE CYCLES
     Route: 065
     Dates: start: 2005

REACTIONS (8)
  - Cardiotoxicity [Recovering/Resolving]
  - Coronary artery disease [Recovering/Resolving]
  - Congestive cardiomyopathy [Recovering/Resolving]
  - Mitral valve incompetence [Recovering/Resolving]
  - Cardiac failure chronic [Recovering/Resolving]
  - Left ventricular dysfunction [Recovering/Resolving]
  - Bundle branch block left [Recovering/Resolving]
  - Cardiac dysfunction [Recovering/Resolving]

NARRATIVE: CASE EVENT DATE: 2009
